FAERS Safety Report 21320598 (Version 1)
Quarter: 2022Q3

REPORT INFORMATION
  Report Type: Spontaneous
  Country: US (occurrence: US)
  Receive Date: 20220912
  Receipt Date: 20220912
  Transmission Date: 20221027
  Serious: No
  Sender: FDA-Public Use
  Company Number: US-APOTEX-2022AP010491

PATIENT
  Age: 65 Year
  Sex: Female

DRUGS (13)
  1. DIVALPROEX SODIUM [Suspect]
     Active Substance: DIVALPROEX SODIUM
     Indication: Bipolar disorder
     Dosage: 1500 MILLIGRAM, QD
     Route: 065
     Dates: end: 201806
  2. DIVALPROEX SODIUM [Suspect]
     Active Substance: DIVALPROEX SODIUM
     Dosage: 750 MILLIGRAM, QD
     Route: 065
     Dates: start: 201806, end: 201807
  3. DIVALPROEX SODIUM [Suspect]
     Active Substance: DIVALPROEX SODIUM
     Dosage: 500 MILLIGRAM, QD
     Route: 065
     Dates: start: 201807
  4. LITHIUM [Suspect]
     Active Substance: LITHIUM
     Indication: Bipolar disorder
     Dosage: UNK
     Route: 065
  5. LURASIDONE [Suspect]
     Active Substance: LURASIDONE
     Indication: Bipolar disorder
     Dosage: 120 MILLIGRAM, QD
     Route: 065
     Dates: end: 201806
  6. LURASIDONE [Suspect]
     Active Substance: LURASIDONE
     Dosage: 60 MILLIGRAM, QD
     Route: 065
     Dates: start: 201806, end: 201902
  7. LURASIDONE [Suspect]
     Active Substance: LURASIDONE
     Dosage: 40 MILLIGRAM, QD
     Route: 065
     Dates: start: 201902
  8. ESCITALOPRAM [Suspect]
     Active Substance: ESCITALOPRAM OXALATE
     Indication: Depression
     Dosage: 10 MILLIGRAM, QD
     Route: 065
     Dates: start: 201904, end: 201908
  9. ESCITALOPRAM [Suspect]
     Active Substance: ESCITALOPRAM OXALATE
     Indication: Anxiety
  10. PERPHENAZINE [Concomitant]
     Active Substance: PERPHENAZINE
     Indication: Bipolar disorder
     Dosage: 16 MILLIGRAM, QD
     Route: 065
  11. PERPHENAZINE [Concomitant]
     Active Substance: PERPHENAZINE
     Dosage: 4 MILLIGRAM, QD
     Route: 065
  12. TEMAZEPAM [Concomitant]
     Active Substance: TEMAZEPAM
     Indication: Insomnia
     Dosage: 30 MILLIGRAM, Q.H.S.
     Route: 065
  13. MELATONIN [Concomitant]
     Active Substance: MELATONIN
     Indication: Insomnia
     Dosage: 5-10 MILLIGRAM, PRN
     Route: 065

REACTIONS (4)
  - Drug metabolite level high [Unknown]
  - Condition aggravated [Recovered/Resolved]
  - Drug intolerance [Unknown]
  - Hyponatraemia [Recovered/Resolved]

NARRATIVE: CASE EVENT DATE: 20180701
